FAERS Safety Report 4844183-8 (Version None)
Quarter: 2005Q4

REPORT INFORMATION
  Report Type: 
  Country: None (occurrence: None)
  Receive Date: 20051202
  Receipt Date: 20051123
  Transmission Date: 20060501
  Serious: Yes (Other)
  Sender: FDA-Public Use
  Company Number: PHBS2005US17449

PATIENT
  Age: 15 Month
  Sex: Female

DRUGS (14)
  1. CYCLOSPORINE [Suspect]
     Indication: CORD BLOOD TRANSPLANT THERAPY
     Route: 048
  2. G-CSF [Concomitant]
  3. IMMUNE GLOBULIN INTRAVENOUS (HUMAN) [Concomitant]
     Dosage: 250 MG/KG/WEKLY
  4. IMMUNE GLOBULIN INTRAVENOUS (HUMAN) [Concomitant]
     Dosage: 500 MG/KG EVERY 3 WEEKS
  5. ANTIBIOTICS [Concomitant]
  6. VORICONAZOLE [Concomitant]
  7. FLUCONAZOLE [Concomitant]
  8. SULFAMETHOXAZOLE + TRIMETHOPRIM [Concomitant]
  9. MELPHALAN [Concomitant]
     Dosage: 60 MG/M2/DOSE DAILY
  10. ETOPOSIDE [Concomitant]
     Dosage: 400 MG/M2/DOSE DAILY
  11. IRRADIATION [Concomitant]
     Dosage: 500 CGY IN TWO FRACTIONS
  12. ANTITHYMOCYTE IMMUNOGLOBULIN [Concomitant]
     Dosage: 30 MG/KG/DAY
  13. CYCLOSPORINE [Suspect]
     Route: 042
  14. PREDNISONE [Concomitant]

REACTIONS (12)
  - ALANINE AMINOTRANSFERASE INCREASED [None]
  - BLOOD BILIRUBIN INCREASED [None]
  - CLOSTRIDIAL INFECTION [None]
  - DIARRHOEA [None]
  - ENTEROBACTER SEPSIS [None]
  - GASTROENTERITIS ROTAVIRUS [None]
  - GRAFT VERSUS HOST DISEASE [None]
  - INFECTION [None]
  - MUCOSAL INFLAMMATION [None]
  - PAIN [None]
  - TACHYCARDIA [None]
  - TACHYPNOEA [None]
